FAERS Safety Report 5857482-8 (Version None)
Quarter: 2008Q3

REPORT INFORMATION
  Report Type: 
  Country: None (occurrence: None)
  Receive Date: 20080818
  Receipt Date: 20080701
  Transmission Date: 20090109
  Serious: No
  Sender: FDA-Public Use
  Company Number: TPA2008A01042

PATIENT

DRUGS (1)
  1. ROZEREM [Suspect]

REACTIONS (2)
  - HANGOVER [None]
  - SEDATION [None]
